FAERS Safety Report 8518348 (Version 2)
Quarter: 2013Q3

REPORT INFORMATION
  Report Type: Spontaneous
  Country: US (occurrence: US)
  Receive Date: 20120417
  Receipt Date: 20130723
  Transmission Date: 20140515
  Serious: Yes (Other)
  Sender: FDA-Public Use
  Company Number: US-ASTRAZENECA-2011SE64560

PATIENT
  Age: 61 Year
  Sex: Female

DRUGS (4)
  1. NEXIUM [Suspect]
     Indication: GASTROINTESTINAL DISORDER
     Route: 048
  2. NEXIUM [Suspect]
     Indication: GASTROINTESTINAL DISORDER
     Route: 048
  3. NEXIUM [Suspect]
     Indication: GASTROINTESTINAL DISORDER
     Route: 048
  4. NEXIUM [Suspect]
     Indication: GASTROINTESTINAL DISORDER
     Route: 048

REACTIONS (7)
  - Lipoma [Unknown]
  - Dysphagia [Unknown]
  - Aphagia [Unknown]
  - Pain [Unknown]
  - Odynophagia [Unknown]
  - Arteriovenous malformation [Unknown]
  - Drug dose omission [Unknown]
